FAERS Safety Report 4933146-X (Version None)
Quarter: 2006Q1

REPORT INFORMATION
  Report Type: 
  Country: None (occurrence: None)
  Receive Date: 20060118
  Receipt Date: 20051111
  Transmission Date: 20060701
  Serious: Yes (Other)
  Sender: FDA-Public Use
  Company Number: US-JNJFOC-20051006245

PATIENT
  Sex: 0

DRUGS (1)
  1. DOXIL [Suspect]
     Indication: DRUG USE FOR UNKNOWN INDICATION
     Dosage: ONE CYCLE
     Dates: start: 20040101, end: 20040101

REACTIONS (1)
  - CONVULSION [None]
